FAERS Safety Report 21435394 (Version 2)
Quarter: 2022Q4

REPORT INFORMATION
  Report Type: Report from Study
  Country: AU (occurrence: AU)
  Receive Date: 20221010
  Receipt Date: 20221021
  Transmission Date: 20230112
  Serious: Yes (Hospitalization)
  Sender: FDA-Public Use
  Company Number: AU-NOVARTISPH-NVSC2021AU292041

PATIENT
  Sex: Female

DRUGS (1)
  1. KESIMPTA [Suspect]
     Active Substance: OFATUMUMAB
     Indication: Relapsing-remitting multiple sclerosis
     Dosage: 20 MG, QMO
     Route: 058
     Dates: start: 20211027

REACTIONS (6)
  - Myalgia [Unknown]
  - Fatigue [Unknown]
  - Liver function test increased [Unknown]
  - C-reactive protein increased [Unknown]
  - Muscle atrophy [Unknown]
  - Hypotonia [Unknown]
